FAERS Safety Report 8032553-9 (Version None)
Quarter: 2012Q1

REPORT INFORMATION
  Report Type: 
  Country: None (occurrence: None)
  Receive Date: 20120110
  Receipt Date: 20110616
  Transmission Date: 20120608
  Serious: No
  Sender: FDA-Public Use
  Company Number: US-MYLANLABS-2011S1008974

PATIENT
  Age: 66 Year
  Sex: Female
  Weight: 68.04 kg

DRUGS (8)
  1. MERCAPTOPURINE [Concomitant]
     Indication: RHEUMATOID ARTHRITIS
  2. METOPROLOL SUCCINATE [Concomitant]
     Indication: BLOOD PRESSURE INCREASED
  3. CALCIUM ACETATE [Concomitant]
  4. HUMIRA [Concomitant]
     Indication: ARTHRITIS
  5. FENOFIBRATE [Suspect]
     Indication: BLOOD CHOLESTEROL INCREASED
     Dates: start: 20101213, end: 20110401
  6. LOSARTAN POTASSIUM [Concomitant]
     Indication: BLOOD PRESSURE INCREASED
  7. MAGNESIUM [Concomitant]
  8. PREDNISONE TAB [Concomitant]
     Indication: RHEUMATOID ARTHRITIS

REACTIONS (2)
  - BLOOD CHOLESTEROL INCREASED [None]
  - DRUG INEFFECTIVE [None]
